FAERS Safety Report 18617012 (Version 2)
Quarter: 2021Q1

REPORT INFORMATION
  Report Type: Report from Study
  Country: BR (occurrence: BR)
  Receive Date: 20201215
  Receipt Date: 20210103
  Transmission Date: 20210419
  Serious: Yes (Hospitalization)
  Sender: FDA-Public Use
  Company Number: BR-BIOGEN-2020BI00956518

PATIENT
  Age: 37 Year
  Sex: Female

DRUGS (2)
  1. LISADOR (DIPYRONE, PROMETAZIN HYDROCHLORIDE AND ADYPHENIN HYDROCHLO... [Concomitant]
     Indication: PRODUCT USED FOR UNKNOWN INDICATION
     Dosage: IN CASE OF PAIN 4 TABLETS
     Route: 048
  2. TECFIDERA [Suspect]
     Active Substance: DIMETHYL FUMARATE
     Indication: MULTIPLE SCLEROSIS
     Dosage: MAINTENANCE DOSE
     Route: 048
     Dates: start: 20201106

REACTIONS (5)
  - Nausea [Unknown]
  - Constipation [Unknown]
  - Temporomandibular joint syndrome [Unknown]
  - Flushing [Recovered/Resolved]
  - Abdominal discomfort [Recovered/Resolved]

NARRATIVE: CASE EVENT DATE: 20201106
